FAERS Safety Report 19105443 (Version 2)
Quarter: 2021Q2

REPORT INFORMATION
  Report Type: Report from Study
  Country: US (occurrence: US)
  Receive Date: 20210407
  Receipt Date: 20210527
  Transmission Date: 20210717
  Serious: Yes (Other)
  Sender: FDA-Public Use
  Company Number: US-BAYER-2019-194432

PATIENT
  Age: 57 Year
  Sex: Male
  Weight: 80.3 kg

DRUGS (3)
  1. COPANLISIB. [Suspect]
     Active Substance: COPANLISIB
     Indication: GLIOBLASTOMA
     Dosage: 120 MG
     Route: 042
     Dates: start: 20191010
  2. DEXAMETHASONE. [Concomitant]
     Active Substance: DEXAMETHASONE
  3. COPANLISIB. [Suspect]
     Active Substance: COPANLISIB
     Indication: GLIOBLASTOMA
     Dosage: 60 MG OVER 60  MINUTES ON DAYS 1, 8 AND 15
     Route: 042
     Dates: start: 20190912

REACTIONS (2)
  - Hyponatraemia [Recovered/Resolved]
  - Lymphocyte count decreased [Recovered/Resolved with Sequelae]

NARRATIVE: CASE EVENT DATE: 20191015
